FAERS Safety Report 12647615 (Version 1)
Quarter: 2016Q3

REPORT INFORMATION
  Report Type: Spontaneous
  Country: US (occurrence: US)
  Receive Date: 20160812
  Receipt Date: 20160812
  Transmission Date: 20161109
  Serious: No
  Sender: FDA-Public Use
  Company Number: US-BAYER-2016-156795

PATIENT
  Sex: Female

DRUGS (1)
  1. BETASERON [Suspect]
     Active Substance: INTERFERON BETA-1B
     Dosage: 1 ML,QOD RECONSTITUTE WITH 1.2ML DILUENT AND INJECT 1ML (0.25MG)
     Route: 058

REACTIONS (1)
  - Injection site bruising [None]
